FAERS Safety Report 7543977-8 (Version None)
Quarter: 2011Q2

REPORT INFORMATION
  Report Type: 
  Country: None (occurrence: None)
  Receive Date: 20110613
  Receipt Date: 20050323
  Transmission Date: 20111010
  Serious: Yes (Life-Threatening, Other)
  Sender: FDA-Public Use
  Company Number: PHFR2004GB03497

PATIENT
  Sex: Female

DRUGS (4)
  1. CITALOPRAM HYDROBROMIDE [Concomitant]
     Indication: DEPRESSION
     Dosage: 20 MG, QD
     Route: 048
     Dates: start: 20021031
  2. CLOZAPINE [Suspect]
     Indication: SCHIZOPHRENIA
     Route: 048
     Dates: start: 19991203, end: 20040913
  3. VALPROATE SODIUM [Concomitant]
     Indication: MOOD ALTERED
     Dosage: 400 MG, QD
     Route: 048
     Dates: start: 20000302
  4. CLOZAPINE [Suspect]
     Dosage: 250 MG, QD

REACTIONS (2)
  - COLON CANCER [None]
  - RECTAL CANCER [None]
